FAERS Safety Report 6074287-6 (Version None)
Quarter: 2009Q1

REPORT INFORMATION
  Report Type: 
  Country: None (occurrence: None)
  Receive Date: 20090211
  Receipt Date: 20090203
  Transmission Date: 20090719
  Serious: Yes (Hospitalization, Other)
  Sender: FDA-Public Use
  Company Number: US-CELGENEUS-163-21880-09020200

PATIENT
  Sex: Female

DRUGS (2)
  1. REVLIMID [Suspect]
     Indication: MULTIPLE MYELOMA
     Route: 048
     Dates: start: 20090203
  2. REVLIMID [Suspect]
     Route: 048
     Dates: start: 20080129, end: 20080901

REACTIONS (3)
  - BACK DISORDER [None]
  - CARDIAC VALVE DISEASE [None]
  - VIRAL INFECTION [None]
